FAERS Safety Report 8395296-8 (Version None)
Quarter: 2012Q2

REPORT INFORMATION
  Report Type: 
  Country: None (occurrence: None)
  Receive Date: 20120530
  Receipt Date: 20120515
  Transmission Date: 20120825
  Serious: Yes (Life-Threatening, Hospitalization)
  Sender: FDA-Public Use
  Company Number: CA-PFIZER INC-2012118595

PATIENT
  Age: 62 Year
  Sex: Male

DRUGS (13)
  1. NOVO-RABEPRAZOLE [Concomitant]
     Dosage: UNK
  2. CLONIDINE [Concomitant]
     Dosage: UNK
     Dates: start: 20120427, end: 20120427
  3. PANTOPRAZOLE [Concomitant]
     Dosage: UNK
     Dates: start: 20120427
  4. ENALAPRIL MALEATE [Concomitant]
  5. ADALAT [Concomitant]
  6. SUNITINIB MALATE [Suspect]
     Dosage: 37.5 MG, 1X/DAY
     Route: 048
     Dates: start: 20100301, end: 20111120
  7. LEVOTHYROXINE SODIUM [Concomitant]
  8. LEVOTHYROXINE SODIUM [Concomitant]
     Dosage: UNK
     Dates: start: 20101117
  9. SUNITINIB MALATE [Suspect]
     Indication: RENAL CELL CARCINOMA
     Dosage: 50 MG, 1X/DAY
     Route: 048
     Dates: start: 20090911, end: 20100211
  10. SUNITINIB MALATE [Suspect]
     Dosage: 50 MG, 1X/DAY
     Route: 048
     Dates: start: 20111223
  11. METFORMIN HYDROCHLORIDE [Concomitant]
     Dosage: UNK
     Dates: start: 20120429
  12. CLONIDINE [Concomitant]
     Dosage: UNK
     Dates: start: 20120428
  13. METFORMIN [Concomitant]

REACTIONS (1)
  - ACUTE MYOCARDIAL INFARCTION [None]
